FAERS Safety Report 16241526 (Version 2)
Quarter: 2019Q2

REPORT INFORMATION
  Report Type: Report from Study
  Country: DE (occurrence: DE)
  Receive Date: 20190426
  Receipt Date: 20190603
  Transmission Date: 20190711
  Serious: No
  Sender: FDA-Public Use
  Company Number: DE-ROCHE-2307239

PATIENT
  Age: 48 Year
  Sex: Male
  Weight: 123 kg

DRUGS (15)
  1. SATIVEX [Concomitant]
     Active Substance: NABIXIMOLS
     Indication: MUSCLE SPASTICITY
     Route: 048
  2. EXFORGE [Concomitant]
     Active Substance: AMLODIPINE BESYLATE\VALSARTAN
     Indication: HYPERTENSION
     Route: 048
     Dates: start: 2013
  3. PARACETAMOL [Concomitant]
     Active Substance: ACETAMINOPHEN
     Route: 040
     Dates: start: 20180907, end: 20181001
  4. IBUPROFEN. [Concomitant]
     Active Substance: IBUPROFEN
     Indication: DIABETIC NEUROPATHY
     Route: 048
  5. METHYLPREDNISOLON [METHYLPREDNISOLONE] [Concomitant]
     Indication: PREMEDICATION
     Route: 040
     Dates: start: 20180917, end: 20181001
  6. METHYLPREDNISOLON [METHYLPREDNISOLONE] [Concomitant]
     Route: 040
     Dates: start: 20190326
  7. BACLOFEN. [Concomitant]
     Active Substance: BACLOFEN
     Indication: HEMIPARESIS
     Route: 048
  8. XIGDUO XR [Concomitant]
     Active Substance: DAPAGLIFLOZIN PROPANEDIOL\METFORMIN HYDROCHLORIDE
     Indication: TYPE 2 DIABETES MELLITUS
     Route: 048
     Dates: start: 2013
  9. TAVEGIL [CLEMASTINE] [Concomitant]
     Active Substance: CLEMASTINE
     Indication: PREMEDICATION
     Route: 040
     Dates: start: 20190326
  10. CITALOPRAM [Concomitant]
     Active Substance: CITALOPRAM HYDROBROMIDE
     Indication: DEPRESSION
     Route: 048
     Dates: start: 201601
  11. OCRELIZUMAB. [Suspect]
     Active Substance: OCRELIZUMAB
     Indication: MULTIPLE SCLEROSIS
     Dosage: DATE OF LAST DOSE: 01/OCT/2018
     Route: 042
     Dates: start: 20180917
  12. TAVEGIL [CLEMASTINE] [Concomitant]
     Active Substance: CLEMASTINE
     Route: 040
     Dates: start: 20180917, end: 20181001
  13. MOXONIDINE [Concomitant]
     Active Substance: MOXONIDINE
     Indication: HYPERTENSION
     Route: 048
  14. PARACETAMOL [Concomitant]
     Active Substance: ACETAMINOPHEN
     Indication: PREMEDICATION
     Route: 040
     Dates: start: 20190326
  15. PANTOPRAZOLE [Concomitant]
     Active Substance: PANTOPRAZOLE
     Dosage: FOR STOMACH PROTECTION
     Route: 048

REACTIONS (1)
  - Mobility decreased [Not Recovered/Not Resolved]

NARRATIVE: CASE EVENT DATE: 201811
